FAERS Safety Report 7942538-6 (Version None)
Quarter: 2011Q4

REPORT INFORMATION
  Report Type: 
  Country: None (occurrence: None)
  Receive Date: 20111128
  Receipt Date: 20111118
  Transmission Date: 20120403
  Serious: Yes (Hospitalization)
  Sender: FDA-Public Use
  Company Number: CZ-GLAXOSMITHKLINE-B0763343A

PATIENT
  Age: 3 Year
  Sex: Male

DRUGS (2)
  1. CORTICOSTEROIDS [Concomitant]
  2. ZINACEF [Suspect]
     Indication: BRONCHOPNEUMONIA
     Route: 042

REACTIONS (5)
  - PYREXIA [None]
  - DIARRHOEA HAEMORRHAGIC [None]
  - PNEUMONIA STREPTOCOCCAL [None]
  - CONDITION AGGRAVATED [None]
  - LEUKOCYTOSIS [None]
